FAERS Safety Report 18252903 (Version 1)
Quarter: 2020Q3

REPORT INFORMATION
  Report Type: Spontaneous
  Country: US (occurrence: US)
  Receive Date: 20200910
  Receipt Date: 20200910
  Transmission Date: 20201103
  Serious: No
  Sender: FDA-Public Use
  Company Number: None

PATIENT
  Sex: Female
  Weight: 95.85 kg

DRUGS (2)
  1. NERLYNX [Suspect]
     Active Substance: NERATINIB
  2. EXEMESTANE. [Suspect]
     Active Substance: EXEMESTANE
     Indication: BREAST CANCER FEMALE
     Route: 048
     Dates: start: 20190321

REACTIONS (5)
  - Dyspepsia [None]
  - Blood pressure increased [None]
  - Fatigue [None]
  - Dehydration [None]
  - Flatulence [None]
